FAERS Safety Report 9580769 (Version 2)
Quarter: 2013Q4

REPORT INFORMATION
  Report Type: Spontaneous
  Country: US (occurrence: None)
  Receive Date: 20130930
  Receipt Date: 20131015
  Transmission Date: 20140711
  Serious: Yes (Congenital Anomaly, Other)
  Sender: FDA-Public Use
  Company Number: AUR-APL-2013-08058

PATIENT
  Sex: 0

DRUGS (6)
  1. ZIDOVUDINE [Suspect]
     Indication: ANTIRETROVIRAL THERAPY
     Route: 064
  2. LAMIVUDINE + ZIDOVUDINE [Suspect]
     Indication: ANTIRETROVIRAL THERAPY
     Route: 064
  3. DARUNAVIR (PREZISTA) [Suspect]
     Indication: ANTIRETROVIRAL THERAPY
     Route: 064
  4. LEXIVA [Suspect]
     Indication: ANTIRETROVIRAL THERAPY
     Route: 064
  5. NORVIR (RITONAVIR) [Suspect]
     Indication: ANTIRETROVIRAL THERAPY
     Route: 064
  6. VIREAD [Suspect]
     Indication: ANTIRETROVIRAL THERAPY
     Route: 064

REACTIONS (3)
  - Micrognathia [None]
  - Maternal drugs affecting foetus [None]
  - Maternal drugs affecting foetus [None]
